FAERS Safety Report 16248824 (Version 2)
Quarter: 2019Q2

REPORT INFORMATION
  Report Type: Spontaneous
  Country: FR (occurrence: FR)
  Receive Date: 20190429
  Receipt Date: 20190522
  Transmission Date: 20190711
  Serious: Yes (Death)
  Sender: FDA-Public Use
  Company Number: FR-ACCORD-124311

PATIENT
  Age: 22 Year
  Sex: Male
  Weight: 71 kg

DRUGS (6)
  1. LEPTICUR [Suspect]
     Active Substance: TROPATEPINE HYDROCHLORIDE
     Indication: DYSKINESIA
     Route: 048
     Dates: end: 20190219
  2. VALIUM [Suspect]
     Active Substance: DIAZEPAM
     Indication: SCHIZOPHRENIA
     Route: 048
     Dates: end: 20190219
  3. TRANSIPEG [Concomitant]
     Route: 048
  4. CLOZAPINE. [Suspect]
     Active Substance: CLOZAPINE
     Indication: SCHIZOPHRENIA
     Route: 048
     Dates: end: 20190219
  5. TERCIAN [Suspect]
     Active Substance: CYAMEMAZINE
     Indication: SCHIZOPHRENIA
     Route: 048
     Dates: end: 20190219
  6. HALDOL [Suspect]
     Active Substance: HALOPERIDOL
     Indication: SCHIZOPHRENIA
     Route: 048
     Dates: end: 20190219

REACTIONS (1)
  - Large intestinal obstruction [Fatal]

NARRATIVE: CASE EVENT DATE: 20190218
